FAERS Safety Report 6404645-9 (Version None)
Quarter: 2009Q4

REPORT INFORMATION
  Report Type: 
  Country: None (occurrence: None)
  Receive Date: 20091016
  Receipt Date: 20091005
  Transmission Date: 20100525
  Serious: Yes (Other)
  Sender: FDA-Public Use
  Company Number: US-ELI_LILLY_AND_COMPANY-US200909001481

PATIENT
  Sex: Female

DRUGS (7)
  1. CYMBALTA [Suspect]
     Dosage: 1 D/F, UNK
  2. CYMBALTA [Suspect]
     Dosage: 120 MG, DAILY (1/D)
  3. CYMBALTA [Suspect]
  4. CYMBALTA [Suspect]
     Dosage: 30 MG, QOD
  5. ABILIFY [Concomitant]
     Dosage: 20 MG, EACH EVENING
  6. TOPAMAX [Concomitant]
     Dosage: 100 MG, EACH EVENING
  7. ALPRAZOLAM [Concomitant]
     Dosage: 1 MG, EACH MORNING

REACTIONS (1)
  - CONVERSION DISORDER [None]
